FAERS Safety Report 5914638-3 (Version None)
Quarter: 2008Q4

REPORT INFORMATION
  Report Type: 
  Country: None (occurrence: None)
  Receive Date: 20081010
  Receipt Date: 20080919
  Transmission Date: 20090506
  Serious: Yes (Disabling)
  Sender: FDA-Public Use
  Company Number: A0746337A

PATIENT
  Age: 45 Year
  Sex: Female
  Weight: 62.7 kg

DRUGS (2)
  1. REQUIP XL [Suspect]
     Indication: PARKINSON'S DISEASE
     Dosage: 2MG PER DAY
     Route: 048
     Dates: start: 20080831, end: 20080902
  2. SINEMET [Concomitant]
     Indication: PARKINSON'S DISEASE
     Dosage: .5TAB THREE TIMES PER DAY
     Route: 048

REACTIONS (7)
  - ASTHENIA [None]
  - BACK PAIN [None]
  - MUSCLE SPASMS [None]
  - MUSCULAR WEAKNESS [None]
  - MYALGIA [None]
  - NAUSEA [None]
  - PAIN IN EXTREMITY [None]
